FAERS Safety Report 5247843-2 (Version None)
Quarter: 2007Q1

REPORT INFORMATION
  Report Type: 
  Country: None (occurrence: None)
  Receive Date: 20070223
  Receipt Date: 20070214
  Transmission Date: 20070707
  Serious: Yes (Death, Other)
  Sender: FDA-Public Use
  Company Number: PHEH2007US01990

PATIENT
  Age: 90 Year
  Sex: Female
  Weight: 25.85 kg

DRUGS (1)
  1. EXJADE [Suspect]
     Indication: IRON OVERLOAD
     Dosage: 375 MG, QD
     Route: 048
     Dates: start: 20060309, end: 20070201

REACTIONS (2)
  - DEATH [None]
  - UNRESPONSIVE TO STIMULI [None]
